FAERS Safety Report 7788447-7 (Version None)
Quarter: 2011Q3

REPORT INFORMATION
  Report Type: 
  Country: None (occurrence: None)
  Receive Date: 20110928
  Receipt Date: 20110919
  Transmission Date: 20111222
  Serious: Yes (Other)
  Sender: FDA-Public Use
  Company Number: 2011SP037103

PATIENT
  Age: 24 Year
  Sex: Female
  Weight: 121.564 kg

DRUGS (1)
  1. IMPLANON [Suspect]
     Indication: CONTRACEPTION
     Dates: start: 20090203, end: 20110804

REACTIONS (1)
  - EWING'S SARCOMA [None]
